FAERS Safety Report 15866021 (Version 4)
Quarter: 2019Q1

REPORT INFORMATION
  Report Type: Report from Study
  Country: None (occurrence: JP)
  Receive Date: 20190125
  Receipt Date: 20190210
  Transmission Date: 20190417
  Serious: Yes (Hospitalization)
  Sender: FDA-Public Use
  Company Number: JP-ABBVIE-18K-087-2597741-00

PATIENT
  Age: 54 Year
  Sex: Female

DRUGS (4)
  1. INSULIN [Concomitant]
     Active Substance: INSULIN NOS
     Indication: DIABETES MELLITUS
  2. STEROIDS [Concomitant]
     Active Substance: UNSPECIFIED INGREDIENT
     Indication: PRODUCT USED FOR UNKNOWN INDICATION
  3. D-CHLORPHENIRAMINE MALEATE [Suspect]
     Active Substance: DEXCHLORPHENIRAMINE MALEATE
     Indication: PRODUCT USED FOR UNKNOWN INDICATION
     Route: 065
  4. MAVIRET [Suspect]
     Active Substance: GLECAPREVIR\PIBRENTASVIR
     Indication: PRODUCT USED FOR UNKNOWN INDICATION
     Route: 048
     Dates: start: 20181204, end: 20190128

REACTIONS (18)
  - Electrolyte imbalance [Unknown]
  - Vomiting [Unknown]
  - Dehydration [Unknown]
  - Blood pressure increased [Unknown]
  - Eating disorder [Unknown]
  - Pruritus generalised [Recovered/Resolved]
  - Rash pruritic [Not Recovered/Not Resolved]
  - Nausea [Unknown]
  - Dyspnoea [Unknown]
  - Eczema vesicular [Unknown]
  - Asthenia [Unknown]
  - Malaise [Unknown]
  - Azotaemia [Unknown]
  - Gamma-glutamyltransferase decreased [Unknown]
  - Stress [Unknown]
  - Headache [Unknown]
  - Cardiac disorder [Unknown]
  - Skin discolouration [Unknown]

NARRATIVE: CASE EVENT DATE: 201812
